FAERS Safety Report 9210524 (Version 2)
Quarter: 2014Q1

REPORT INFORMATION
  Report Type: Spontaneous
  Country: US (occurrence: US)
  Receive Date: 20130404
  Receipt Date: 20140116
  Transmission Date: 20141002
  Serious: Yes (Other)
  Sender: FDA-Public Use
  Company Number: US-BAYER-2013-040537

PATIENT
  Sex: Female

DRUGS (11)
  1. YAZ [Suspect]
     Dosage: UNK
     Dates: start: 200806
  2. YASMIN [Suspect]
     Dosage: UNK
     Dates: start: 200806
  3. SULFACETAMIDE SODIUM [SULFACETAMIDE SODIUM] [Concomitant]
     Indication: ACNE
     Dosage: 10 %, BID
     Route: 061
     Dates: start: 20080920, end: 20090801
  4. VALTREX [Concomitant]
     Dosage: 500 MG, UNK
     Dates: start: 20080920, end: 20090801
  5. DICYCLOMINE [Concomitant]
     Dosage: 20 MG, UNK
     Dates: start: 20090302
  6. CLARITIN [Concomitant]
     Dosage: 10 MG, DAILY
     Dates: start: 20090506
  7. FISH OIL [Concomitant]
     Dosage: 1000 MG, DAILY
     Dates: start: 20090506
  8. FLAXSEED OIL [Concomitant]
     Dosage: 1000 MG, DAILY
     Dates: start: 20090506
  9. MULTIVITAMIN [Concomitant]
     Dosage: UNK, DAILY
     Dates: start: 20090506
  10. BENTYL [Concomitant]
     Dosage: 20 MG, UNK
  11. KLARON [SALICYLIC ACID,SULFUR] [Concomitant]
     Dosage: 10 UNK, UNK
     Route: 061

REACTIONS (6)
  - Gallbladder injury [None]
  - Cholecystitis [None]
  - Pain [None]
  - Injury [None]
  - Fear of disease [None]
  - Pain [None]
